FAERS Safety Report 10955151 (Version 1)
Quarter: 2015Q1

REPORT INFORMATION
  Report Type: Spontaneous
  Country: US (occurrence: US)
  Receive Date: 20150326
  Receipt Date: 20150326
  Transmission Date: 20150721
  Serious: Yes (Other)
  Sender: FDA-Public Use
  Company Number: US-ROCHE-1542380

PATIENT
  Age: 7 Year
  Sex: Male
  Weight: 26.33 kg

DRUGS (1)
  1. TAMIFLU [Suspect]
     Active Substance: OSELTAMIVIR PHOSPHATE
     Indication: INFLUENZA
     Dosage: FOR FIVE DAYS ?2 CAPSULES
     Route: 048
     Dates: start: 20150210, end: 20150215

REACTIONS (4)
  - Tunnel vision [Recovering/Resolving]
  - Hallucination, visual [Recovering/Resolving]
  - Hallucination, auditory [Recovering/Resolving]
  - Hallucination [Recovered/Resolved]

NARRATIVE: CASE EVENT DATE: 20150211
